FAERS Safety Report 6136750-9 (Version None)
Quarter: 2009Q1

REPORT INFORMATION
  Report Type: 
  Country: None (occurrence: None)
  Receive Date: 20090325
  Receipt Date: 20090310
  Transmission Date: 20090719
  Serious: Yes (Other)
  Sender: FDA-Public Use
  Company Number: 2009S1004341

PATIENT
  Age: 18 Year
  Sex: Female

DRUGS (2)
  1. AMNESTEEM [Suspect]
     Dosage: 40 MG;DAILY; ORAL
     Route: 048
     Dates: start: 20080715, end: 20081201
  2. ORAL CONTRACEPTIVE NOS (CON) [Concomitant]

REACTIONS (3)
  - DEPRESSION [None]
  - DRUG EXPOSURE DURING PREGNANCY [None]
  - PREGNANCY [None]
